FAERS Safety Report 20371948 (Version 1)
Quarter: 2022Q1

REPORT INFORMATION
  Report Type: Spontaneous
  Country: US (occurrence: US)
  Receive Date: 20220124
  Receipt Date: 20220124
  Transmission Date: 20220423
  Serious: Yes (Hospitalization)
  Sender: FDA-Public Use
  Company Number: US-Kaleo, Inc.-2022KL000004

PATIENT

DRUGS (1)
  1. EVZIO [Suspect]
     Active Substance: NALOXONE HYDROCHLORIDE
     Route: 030

REACTIONS (1)
  - Acute pulmonary oedema [Recovered/Resolved]
